FAERS Safety Report 5555596-3 (Version None)
Quarter: 2007Q4

REPORT INFORMATION
  Report Type: 
  Country: None (occurrence: None)
  Receive Date: 20071213
  Receipt Date: 20070823
  Transmission Date: 20080405
  Serious: No
  Sender: FDA-Public Use
  Company Number: US-AMGEN-KDL240189

PATIENT
  Sex: Female

DRUGS (3)
  1. ENBREL [Suspect]
     Indication: ARTHRITIS
     Route: 058
     Dates: start: 20021201
  2. ENBREL [Suspect]
     Indication: CROHN'S DISEASE
  3. ENBREL [Suspect]
     Indication: DRUG USE FOR UNKNOWN INDICATION

REACTIONS (10)
  - ANAEMIA [None]
  - ASTHENIA [None]
  - BRONCHITIS [None]
  - INFECTION [None]
  - INJECTION SITE PAIN [None]
  - NEUROPATHY [None]
  - PAIN [None]
  - SINUSITIS [None]
  - STAPHYLOCOCCAL SKIN INFECTION [None]
  - URINARY TRACT INFECTION [None]
